FAERS Safety Report 6093897-3 (Version None)
Quarter: 2009Q1

REPORT INFORMATION
  Report Type: 
  Country: None (occurrence: None)
  Receive Date: 20090224
  Receipt Date: 20090224
  Transmission Date: 20090719
  Serious: No
  Sender: FDA-Public Use
  Company Number: None

PATIENT
  Sex: Male
  Weight: 74.8435 kg

DRUGS (1)
  1. DETROL LA [Suspect]
     Indication: POLLAKIURIA
     Dates: start: 20080508, end: 20081115

REACTIONS (3)
  - DRUG INEFFECTIVE [None]
  - EXTRASYSTOLES [None]
  - MIDDLE INSOMNIA [None]
